FAERS Safety Report 8971475 (Version 1)
Quarter: 2012Q4

REPORT INFORMATION
  Report Type: Report from Study
  Country: US (occurrence: US)
  Receive Date: 20121217
  Receipt Date: 20121217
  Transmission Date: 20130627
  Serious: Yes (Hospitalization, Congenital Anomaly)
  Sender: FDA-Public Use
  Company Number: US-GILEAD-2012-0065961

PATIENT
  Sex: Female

DRUGS (7)
  1. EMTRICITABINE/TENOFOVIR DISOPROXIL FUMARATE [Suspect]
     Indication: HIV INFECTION
     Dosage: UNK
     Route: 064
     Dates: start: 20120815, end: 20120912
  2. REYATAZ [Concomitant]
     Dosage: UNK
     Dates: start: 20120815, end: 20120912
  3. NORVIR [Concomitant]
     Dosage: UNK
     Dates: start: 20120815, end: 20120912
  4. KALETRA [Concomitant]
     Dosage: UNK
     Dates: start: 20120913, end: 20120920
  5. KALETRA [Concomitant]
     Dosage: UNK
     Dates: start: 20120921, end: 20121114
  6. COMBIVIR [Concomitant]
     Dosage: UNK
     Dates: start: 20120913, end: 20121114
  7. TRIMETHOPRIM SULFA [Concomitant]

REACTIONS (18)
  - Brachycephaly [Unknown]
  - Skull malformation [Unknown]
  - Congenital eye disorder [Unknown]
  - Nasal disorder [Unknown]
  - Nipple disorder [Unknown]
  - Vulval disorder [Unknown]
  - Congenital skin dimples [Unknown]
  - Clinodactyly [Unknown]
  - Finger deformity [Unknown]
  - Neonatal respiratory distress syndrome [Unknown]
  - Respiratory failure [Unknown]
  - Sepsis [Unknown]
  - Head deformity [Unknown]
  - Congenital eye disorder [Unknown]
  - Facial asymmetry [Unknown]
  - Cytogenetic abnormality [Unknown]
  - Dysmorphism [Unknown]
  - Ear malformation [Unknown]
